FAERS Safety Report 6966775-2 (Version None)
Quarter: 2010Q3

REPORT INFORMATION
  Report Type: 
  Country: None (occurrence: None)
  Receive Date: 20100906
  Receipt Date: 20100901
  Transmission Date: 20110219
  Serious: Yes (Hospitalization, Other)
  Sender: FDA-Public Use
  Company Number: US-BRISTOL-MYERS SQUIBB COMPANY-15268089

PATIENT
  Age: 53 Year
  Sex: Male
  Weight: 102 kg

DRUGS (4)
  1. ERBITUX [Suspect]
     Indication: OESOPHAGEAL SQUAMOUS CELL CARCINOMA
     Dosage: 400MG/M2:IVX1 250MGLM2:IVWEEKLYX5;
     Route: 042
     Dates: start: 20100719, end: 20100823
  2. CISPLATIN [Suspect]
     Indication: OESOPHAGEAL SQUAMOUS CELL CARCINOMA
     Dosage: 25MG/M2:IV
     Route: 042
     Dates: start: 20100719, end: 20100823
  3. TAXOL [Suspect]
     Indication: OESOPHAGEAL SQUAMOUS CELL CARCINOMA
     Dosage: 50MG/M2:IVWEEKLYX6 DOSES
     Route: 042
     Dates: start: 20100719, end: 20100823
  4. RADIATION THERAPY [Suspect]
     Indication: OESOPHAGEAL SQUAMOUS CELL CARCINOMA
     Dosage: EXTERNAL BEAM NOS NO OF FRAC:28 NO OF ELP DAY:7 1 DF=50.4 GY IN 28/DAY FRACTIONS
     Dates: start: 20100719, end: 20100825

REACTIONS (5)
  - FEBRILE NEUTROPENIA [None]
  - HYPOMAGNESAEMIA [None]
  - NEUTROPHIL COUNT DECREASED [None]
  - OESOPHAGITIS [None]
  - VOMITING [None]
